FAERS Safety Report 4910605-7 (Version None)
Quarter: 2006Q1

REPORT INFORMATION
  Report Type: 
  Country: None (occurrence: None)
  Receive Date: 20060214
  Receipt Date: 20051213
  Transmission Date: 20060701
  Serious: Yes (Death, Hospitalization)
  Sender: FDA-Public Use
  Company Number: US-AMGEN-US161291

PATIENT
  Sex: Female

DRUGS (16)
  1. ENBREL [Suspect]
     Indication: RHEUMATOID ARTHRITIS
     Dates: start: 20030521, end: 20040121
  2. ATIVAN [Concomitant]
  3. MORPHINE [Concomitant]
  4. REGLAN [Concomitant]
  5. SOLU-MEDROL [Concomitant]
  6. APRESOLINE [Concomitant]
  7. NORVASC [Concomitant]
  8. CATAPRES [Concomitant]
  9. PROTONIX [Concomitant]
  10. VANCOMYCIN [Concomitant]
  11. LASIX [Concomitant]
  12. CEFEPIME [Concomitant]
  13. DILAUDID [Concomitant]
  14. PROVENTIL [Concomitant]
  15. TYLENOL (CAPLET) [Concomitant]
  16. LABETALOL HCL [Concomitant]

REACTIONS (3)
  - MULTI-ORGAN FAILURE [None]
  - SEPSIS [None]
  - URINARY TRACT INFECTION [None]
